FAERS Safety Report 18361653 (Version 4)
Quarter: 2020Q4

REPORT INFORMATION
  Report Type: Report from Study
  Country: PE (occurrence: PE)
  Receive Date: 20201008
  Receipt Date: 20201130
  Transmission Date: 20210114
  Serious: Yes (Death, Hospitalization)
  Sender: FDA-Public Use
  Company Number: PE-BAYER-2020-212176

PATIENT
  Age: 48 Year
  Sex: Male

DRUGS (2)
  1. NEXAVAR [Suspect]
     Active Substance: SORAFENIB
     Indication: HEPATOCELLULAR CARCINOMA
     Dosage: 400 MG, BID
     Dates: start: 20200910, end: 2020
  2. ENALAPRIL [Concomitant]
     Active Substance: ENALAPRIL

REACTIONS (12)
  - Urinary tract infection [Not Recovered/Not Resolved]
  - Rash [Fatal]
  - Rash [Fatal]
  - Swelling face [Fatal]
  - Dysuria [Fatal]
  - Pyrexia [Fatal]
  - Blister [None]
  - Hiccups [None]
  - Hepatic function abnormal [Not Recovered/Not Resolved]
  - Septic shock [Fatal]
  - Fluid retention [None]
  - Rash [Recovered/Resolved]

NARRATIVE: CASE EVENT DATE: 202009
